FAERS Safety Report 5316006-4 (Version None)
Quarter: 2007Q2

REPORT INFORMATION
  Report Type: 
  Country: None (occurrence: None)
  Receive Date: 20070503
  Receipt Date: 20070320
  Transmission Date: 20071010
  Serious: Yes (Hospitalization, Other)
  Sender: FDA-Public Use
  Company Number: US-PFIZER INC-2006149401

PATIENT
  Sex: Male
  Weight: 99.8 kg

DRUGS (5)
  1. BEXTRA [Suspect]
     Indication: PAIN
     Route: 048
     Dates: start: 20031001, end: 20040501
  2. BEXTRA [Suspect]
     Indication: INFLAMMATION
  3. BEXTRA [Suspect]
     Indication: BACK PAIN
  4. BEXTRA [Suspect]
     Indication: ARTHRALGIA
  5. BEXTRA [Suspect]
     Indication: NECK PAIN

REACTIONS (3)
  - CEREBROVASCULAR ACCIDENT [None]
  - INSOMNIA [None]
  - MEMORY IMPAIRMENT [None]
